FAERS Safety Report 10065074 (Version 7)
Quarter: 2015Q4

REPORT INFORMATION
  Report Type: Report from Study
  Country: US (occurrence: US)
  Receive Date: 20140408
  Receipt Date: 20151120
  Transmission Date: 20160304
  Serious: Yes (Disabling, Other)
  Sender: FDA-Public Use
  Company Number: US-SA-2014SA040175

PATIENT
  Age: 59 Year
  Sex: Male

DRUGS (4)
  1. AUBAGIO [Suspect]
     Active Substance: TERIFLUNOMIDE
     Indication: PROGRESSIVE MULTIPLE SCLEROSIS
     Route: 048
     Dates: start: 20130323
  2. RISPERDAL [Concomitant]
     Active Substance: RISPERIDONE
     Indication: ANXIETY
  3. KLONOPIN [Concomitant]
     Active Substance: CLONAZEPAM
     Indication: ANXIETY
  4. AUBAGIO [Suspect]
     Active Substance: TERIFLUNOMIDE
     Indication: MULTIPLE SCLEROSIS
     Route: 048
     Dates: start: 20130323

REACTIONS (22)
  - Wheelchair user [Unknown]
  - Progressive multiple sclerosis [Unknown]
  - Musculoskeletal pain [Not Recovered/Not Resolved]
  - Disability [Unknown]
  - Cognitive disorder [Unknown]
  - Drug dose omission [Unknown]
  - Pain [Unknown]
  - Ear operation [Unknown]
  - Emotional disorder [Unknown]
  - Bladder disorder [Unknown]
  - Intervertebral disc disorder [Unknown]
  - Walking aid user [Unknown]
  - Pain [Recovering/Resolving]
  - Neuropathy peripheral [Unknown]
  - Multiple sclerosis relapse [Unknown]
  - Mobility decreased [Unknown]
  - Central nervous system lesion [Unknown]
  - Rash [Recovered/Resolved]
  - Gait disturbance [Unknown]
  - Neuralgia [Not Recovered/Not Resolved]
  - Anxiety [Unknown]
  - Muscle disorder [Unknown]

NARRATIVE: CASE EVENT DATE: 201401
